FAERS Safety Report 15049775 (Version 1)
Quarter: 2018Q2

REPORT INFORMATION
  Report Type: Other
  Country: GB (occurrence: GB)
  Receive Date: 20180622
  Receipt Date: 20180622
  Transmission Date: 20180711
  Serious: Yes (Other)
  Sender: FDA-Public Use
  Company Number: GB-GLENMARK PHARMACEUTICALS-2018GMK036115

PATIENT

DRUGS (2)
  1. GABAPENTIN. [Suspect]
     Active Substance: GABAPENTIN
     Indication: PROCEDURAL PAIN
     Dosage: 900 MG, UNK
     Route: 048
     Dates: start: 20171124
  2. GABAPENTIN. [Suspect]
     Active Substance: GABAPENTIN
     Dosage: UNK (DOSE REDUCED FROM 900 MG)
     Route: 048
     Dates: end: 20180212

REACTIONS (7)
  - Sleep disorder [Unknown]
  - Nightmare [Recovering/Resolving]
  - Pruritus [Not Recovered/Not Resolved]
  - Coordination abnormal [Recovering/Resolving]
  - Withdrawal syndrome [Recovering/Resolving]
  - Photosensitivity reaction [Not Recovered/Not Resolved]
  - Rash [Not Recovered/Not Resolved]

NARRATIVE: CASE EVENT DATE: 20180124
